FAERS Safety Report 7981185-7 (Version None)
Quarter: 2011Q4

REPORT INFORMATION
  Report Type: 
  Country: None (occurrence: None)
  Receive Date: 20111215
  Receipt Date: 20111209
  Transmission Date: 20120403
  Serious: Yes (Life-Threatening, Hospitalization)
  Sender: FDA-Public Use
  Company Number: US-BAYER-2011-022041

PATIENT
  Age: 39 Year
  Sex: Female
  Weight: 86 kg

DRUGS (12)
  1. RHINOCORT [Concomitant]
     Route: 045
  2. AUGMENTIN [Concomitant]
     Dosage: 875 MG, QD
     Route: 048
  3. ACETAMINOPHEN [Concomitant]
     Indication: ANALGESIC THERAPY
     Dosage: UNK UNK, QD
     Dates: start: 20070328, end: 20070401
  4. MEDROL [Concomitant]
     Dosage: UNK
     Dates: start: 20070201
  5. YASMIN [Suspect]
     Indication: ACNE
  6. MEPROZINE [Concomitant]
     Indication: ANALGESIC THERAPY
     Dosage: UNK
     Dates: start: 20070328, end: 20070401
  7. PREDNISONE [Concomitant]
     Dosage: 20 MG, UNK
     Dates: start: 20070319, end: 20070401
  8. YASMIN [Suspect]
     Indication: CONTRACEPTION
     Dosage: UNK
     Dates: start: 20060901, end: 20071001
  9. ADVAIR DISKUS 100/50 [Concomitant]
     Indication: ASTHMA
     Route: 048
  10. CEPHALEXIN [Concomitant]
     Dosage: UNK UNK, QD
     Dates: start: 20070328, end: 20070401
  11. ALLEGRA [Concomitant]
     Indication: MULTIPLE ALLERGIES
     Dosage: UNK UNK, PRN
     Route: 048
  12. VALTREX [Concomitant]
     Indication: MOUTH ULCERATION
     Route: 048

REACTIONS (4)
  - DEEP VEIN THROMBOSIS [None]
  - ANXIETY [None]
  - INJURY [None]
  - PAIN [None]
